FAERS Safety Report 4443710-2 (Version None)
Quarter: 2004Q3

REPORT INFORMATION
  Report Type: 
  Country: None (occurrence: None)
  Receive Date: 20040729
  Receipt Date: 20040302
  Transmission Date: 20050211
  Serious: Yes (Hospitalization)
  Sender: FDA-Public Use
  Company Number: US-JNJFOC-20040202060

PATIENT
  Age: 54 Year
  Sex: Male
  Weight: 102.9665 kg

DRUGS (4)
  1. RISPERDAL [Suspect]
     Indication: BIPOLAR DISORDER
     Dosage: ORAL
     Route: 048
  2. SEROQUEL [Suspect]
     Indication: DRUG USE FOR UNKNOWN INDICATION
     Dosage: 500MG @ HS ;  100MG PRN FOR AGITATION
  3. LITHIUM CARBONATE [Concomitant]
  4. INDERAL [Concomitant]

REACTIONS (2)
  - NEUROLEPTIC MALIGNANT SYNDROME [None]
  - PNEUMONIA [None]
